FAERS Safety Report 15761570 (Version 2)
Quarter: 2019Q1

REPORT INFORMATION
  Report Type: Spontaneous
  Country: US (occurrence: US)
  Receive Date: 20181226
  Receipt Date: 20190315
  Transmission Date: 20190417
  Serious: Yes (Other)
  Sender: FDA-Public Use
  Company Number: US-ALLERGAN-1859038US

PATIENT
  Sex: Female
  Weight: 52.15 kg

DRUGS (2)
  1. CARAFATE [Suspect]
     Active Substance: SUCRALFATE
     Indication: ULCERATIVE GASTRITIS
     Dosage: 1 G A DAY BEFORE MEALS AND AT BEDTIME
     Route: 048
  2. DELZICOL [Concomitant]
     Active Substance: MESALAMINE
     Indication: COLITIS
     Dosage: 400 MG
     Route: 048

REACTIONS (9)
  - Cataract [Not Recovered/Not Resolved]
  - Off label use [Unknown]
  - Product solubility abnormal [Unknown]
  - Body height decreased [Not Recovered/Not Resolved]
  - Product physical issue [Unknown]
  - Hypothyroidism [Not Recovered/Not Resolved]
  - Condition aggravated [Not Recovered/Not Resolved]
  - Incorrect product administration duration [Unknown]
  - Macular degeneration [Not Recovered/Not Resolved]

NARRATIVE: CASE EVENT DATE: 2008
